FAERS Safety Report 12136711 (Version 1)
Quarter: 2016Q1

REPORT INFORMATION
  Report Type: Spontaneous
  Country: US (occurrence: None)
  Receive Date: 20160301
  Receipt Date: 20160301
  Transmission Date: 20160526
  Serious: Yes (Hospitalization)
  Sender: FDA-Public Use
  Company Number: None

PATIENT
  Age: 24 Year
  Sex: Male
  Weight: 88 kg

DRUGS (1)
  1. AMOXICILLIN/CLAVULANATE [Suspect]
     Active Substance: AMOXICILLIN\CLAVULANATE POTASSIUM
     Dosage: 1 TABLET BID PO
     Route: 048
     Dates: start: 20150909, end: 20150919

REACTIONS (10)
  - Hyperhidrosis [None]
  - Pleurisy [None]
  - Abdominal pain [None]
  - Diarrhoea [None]
  - Vomiting [None]
  - Chest pain [None]
  - Nausea [None]
  - Chills [None]
  - Pyrexia [None]
  - Clostridium difficile colitis [None]

NARRATIVE: CASE EVENT DATE: 20151028
